FAERS Safety Report 22984275 (Version 3)
Quarter: 2024Q2

REPORT INFORMATION
  Report Type: Report from Study
  Country: US (occurrence: US)
  Receive Date: 20230926
  Receipt Date: 20240522
  Transmission Date: 20240717
  Serious: Yes (Disabling, Other)
  Sender: FDA-Public Use
  Company Number: US-ABBVIE-5421740

PATIENT
  Sex: Female
  Weight: 113 kg

DRUGS (2)
  1. HUMIRA [Suspect]
     Active Substance: ADALIMUMAB
     Indication: Uveitis
     Dosage: FORM STRENGTH: 40 MILLIGRAM;?CITRATE FREE, LOW DOSE
     Route: 058
     Dates: start: 20230526
  2. METHOTREXATE [Concomitant]
     Active Substance: METHOTREXATE
     Indication: Uveitis

REACTIONS (15)
  - Disability [Unknown]
  - Throat irritation [Not Recovered/Not Resolved]
  - COVID-19 [Not Recovered/Not Resolved]
  - Feeding disorder [Not Recovered/Not Resolved]
  - Pain [Not Recovered/Not Resolved]
  - Seizure [Not Recovered/Not Resolved]
  - Visual impairment [Unknown]
  - Impaired driving ability [Unknown]
  - Impaired work ability [Unknown]
  - Dizziness [Unknown]
  - Stress [Unknown]
  - Therapeutic product effect decreased [Unknown]
  - Post-traumatic stress disorder [Unknown]
  - Cataract operation complication [Unknown]
  - Uveitis [Unknown]

NARRATIVE: CASE EVENT DATE: 20230101
